FAERS Safety Report 16654073 (Version 1)
Quarter: 2019Q3

REPORT INFORMATION
  Report Type: Spontaneous
  Country: US (occurrence: US)
  Receive Date: 20190731
  Receipt Date: 20190731
  Transmission Date: 20191004
  Serious: No
  Sender: FDA-Public Use
  Company Number: US-SA-2019SA160667

PATIENT
  Sex: Male

DRUGS (2)
  1. CYCLOBENZAPRINE. [Concomitant]
     Active Substance: CYCLOBENZAPRINE
  2. AUBAGIO [Suspect]
     Active Substance: TERIFLUNOMIDE

REACTIONS (4)
  - Musculoskeletal pain [Unknown]
  - Intervertebral disc degeneration [Unknown]
  - Headache [Unknown]
  - Neck pain [Unknown]
